FAERS Safety Report 16981625 (Version 1)
Quarter: 2019Q4

REPORT INFORMATION
  Report Type: Spontaneous
  Country: US (occurrence: US)
  Receive Date: 20191101
  Receipt Date: 20191101
  Transmission Date: 20200122
  Serious: Yes (Other)
  Sender: FDA-Public Use
  Company Number: US-BEH-2019108456

PATIENT
  Age: 57 Year
  Sex: Female

DRUGS (1)
  1. SET, I.V. FLUID TRANSFER/ NEEDLE, HYPODERMIC, SINGLE LUMEN [Suspect]
     Active Substance: .ALPHA.1-PROTEINASE INHIBITOR HUMAN
     Dosage: UNK
     Route: 065

REACTIONS (12)
  - Night sweats [Unknown]
  - Patient dissatisfaction with treatment [Unknown]
  - Dizziness [Unknown]
  - Nausea [Unknown]
  - Pruritus [Unknown]
  - Aphasia [Unknown]
  - Headache [Unknown]
  - Taste disorder [Unknown]
  - Sluggishness [Unknown]
  - Chest discomfort [Unknown]
  - Hyperhidrosis [Unknown]
  - Dysphagia [Unknown]
